FAERS Safety Report 7069501-4 (Version None)
Quarter: 2010Q4

REPORT INFORMATION
  Report Type: 
  Country: None (occurrence: None)
  Receive Date: 20101028
  Receipt Date: 20100311
  Transmission Date: 20110411
  Serious: No
  Sender: FDA-Public Use
  Company Number: US-WYE-H13620410

PATIENT
  Sex: Female
  Weight: 86.26 kg

DRUGS (8)
  1. EFFEXOR XR [Suspect]
     Indication: DEPRESSION
     Route: 048
     Dates: start: 20091101
  2. EFFEXOR XR [Suspect]
     Route: 048
  3. EFFEXOR XR [Suspect]
     Route: 048
  4. EFFEXOR XR [Suspect]
     Route: 048
  5. VITAMIN TAB [Concomitant]
  6. WELLBUTRIN [Concomitant]
  7. EFFEXOR [Suspect]
     Route: 048
     Dates: end: 20100209
  8. AMBIEN [Concomitant]

REACTIONS (2)
  - DRUG WITHDRAWAL SYNDROME [None]
  - PARAESTHESIA [None]
